FAERS Safety Report 7569946-X (Version None)
Quarter: 2011Q2

REPORT INFORMATION
  Report Type: 
  Country: None (occurrence: None)
  Receive Date: 20110624
  Receipt Date: 20110621
  Transmission Date: 20111010
  Serious: No
  Sender: FDA-Public Use
  Company Number: US-PFIZER INC-2011137891

PATIENT
  Sex: Female
  Weight: 58.957 kg

DRUGS (4)
  1. PROTONIX [Suspect]
     Indication: GASTROOESOPHAGEAL REFLUX DISEASE
     Dosage: 40 MG, DAILY
     Route: 048
  2. AMBIEN [Concomitant]
     Indication: SLEEP DISORDER
     Dosage: 10 MG, DAILY
     Route: 048
     Dates: start: 20100101
  3. GLUCOPHAGE [Concomitant]
     Indication: DIABETES MELLITUS
     Dosage: UNK
     Route: 048
  4. ZOCOR [Concomitant]
     Indication: BLOOD CHOLESTEROL INCREASED
     Dosage: UNK
     Route: 048

REACTIONS (1)
  - FIBROMYALGIA [None]
